FAERS Safety Report 8550593-8 (Version None)
Quarter: 2012Q3

REPORT INFORMATION
  Report Type: 
  Country: None (occurrence: None)
  Receive Date: 20120730
  Receipt Date: 20110627
  Transmission Date: 20120928
  Serious: No
  Sender: FDA-Public Use
  Company Number: US-ALLERGAN-1108673US

PATIENT
  Sex: Female

DRUGS (1)
  1. LATISSE [Suspect]
     Indication: GROWTH OF EYELASHES
     Dosage: 1 GTT, QHS
     Route: 061
     Dates: start: 20110401, end: 20110401

REACTIONS (7)
  - INAPPROPRIATE SCHEDULE OF DRUG ADMINISTRATION [None]
  - EYELID OEDEMA [None]
  - EYELID MARGIN CRUSTING [None]
  - EYE PRURITUS [None]
  - ERYTHEMA OF EYELID [None]
  - DRY SKIN [None]
  - EYELIDS PRURITUS [None]
